FAERS Safety Report 5794946-X (Version None)
Quarter: 2008Q2

REPORT INFORMATION
  Report Type: 
  Country: None (occurrence: None)
  Receive Date: 20080630
  Receipt Date: 20080619
  Transmission Date: 20081010
  Serious: Yes (Death, Other)
  Sender: FDA-Public Use
  Company Number: JP-ROCHE-568750

PATIENT
  Age: 14 Year
  Sex: Male

DRUGS (1)
  1. TAMIFLU [Suspect]
     Route: 065
     Dates: start: 20050204

REACTIONS (4)
  - ABNORMAL BEHAVIOUR [None]
  - ACCIDENTAL DEATH [None]
  - FALL [None]
  - HAEMORRHAGE [None]
